FAERS Safety Report 9691967 (Version 1)
Quarter: 2013Q4

REPORT INFORMATION
  Report Type: Spontaneous
  Country: US (occurrence: US)
  Receive Date: 20131118
  Receipt Date: 20131118
  Transmission Date: 20140711
  Serious: No
  Sender: FDA-Public Use
  Company Number: US-B.I. PHARMACEUTICALS,INC./RIDGEFIELD-2013-BI-35886BP

PATIENT
  Sex: Male

DRUGS (1)
  1. MICARDIS [Suspect]
     Dosage: 80 MG
     Route: 048
     Dates: start: 2005

REACTIONS (1)
  - Tremor [Not Recovered/Not Resolved]
